FAERS Safety Report 23886016 (Version 2)
Quarter: 2024Q2

REPORT INFORMATION
  Report Type: Spontaneous
  Country: US (occurrence: US)
  Receive Date: 20240522
  Receipt Date: 20240621
  Transmission Date: 20240716
  Serious: No
  Sender: FDA-Public Use
  Company Number: US-Blueprint Medicines Corporation-3609

PATIENT
  Sex: Female

DRUGS (2)
  1. AYVAKIT [Suspect]
     Active Substance: AVAPRITINIB
     Indication: Gastrointestinal stromal tumour
     Route: 065
     Dates: start: 20240229
  2. AYVAKIT [Suspect]
     Active Substance: AVAPRITINIB
     Route: 065
     Dates: start: 20240229

REACTIONS (11)
  - Pain in extremity [Unknown]
  - Taste disorder [Unknown]
  - Muscle spasms [Unknown]
  - Decreased appetite [Unknown]
  - Weight decreased [Unknown]
  - Myalgia [Unknown]
  - Alopecia [Unknown]
  - Hair colour changes [Unknown]
  - Liver disorder [Unknown]
  - Unevaluable event [Unknown]
  - Adverse drug reaction [Unknown]
